FAERS Safety Report 7728880-2 (Version None)
Quarter: 2011Q3

REPORT INFORMATION
  Report Type: 
  Country: None (occurrence: None)
  Receive Date: 20110906
  Receipt Date: 20110830
  Transmission Date: 20111222
  Serious: Yes (Other)
  Sender: FDA-Public Use
  Company Number: NL-AMGEN-NLDSP2010006190

PATIENT
  Age: 76 Year
  Sex: Female

DRUGS (5)
  1. ENBREL [Suspect]
     Indication: RHEUMATOID ARTHRITIS
     Dosage: UNK, WEEKLY
     Dates: start: 20100824
  2. GLUCOSAMINE [Concomitant]
  3. VITAMIN D [Concomitant]
  4. PREDNISONE [Concomitant]
     Dosage: 5 MG, UNK
     Route: 048
  5. PLAQUENIL [Concomitant]
     Dosage: 200 MG, UNK
     Route: 048
     Dates: start: 20100201

REACTIONS (5)
  - RHEUMATOID ARTHRITIS [None]
  - ALOPECIA [None]
  - DIZZINESS [None]
  - TREMOR [None]
  - PRURITUS [None]
